FAERS Safety Report 16091610 (Version 1)
Quarter: 2019Q1

REPORT INFORMATION
  Report Type: Spontaneous
  Country: ES (occurrence: ES)
  Receive Date: 20190319
  Receipt Date: 20190319
  Transmission Date: 20190418
  Serious: Yes (Other)
  Sender: FDA-Public Use
  Company Number: ES-BAYER-2019-022466

PATIENT
  Age: 50 Year
  Sex: Female

DRUGS (2)
  1. STIVARGA [Suspect]
     Active Substance: REGORAFENIB
     Indication: COLORECTAL CANCER METASTATIC
     Dosage: UNK
     Dates: end: 20160219
  2. STIVARGA [Suspect]
     Active Substance: REGORAFENIB
     Indication: COLORECTAL CANCER METASTATIC
     Dosage: DAILY DOSE 160 MG
     Dates: start: 20131205

REACTIONS (14)
  - Pulmonary mass [None]
  - Metastases to lung [None]
  - Ovarian mass [None]
  - Diarrhoea [None]
  - Inflammation [None]
  - Lymphadenopathy mediastinal [None]
  - Metastases to peritoneum [None]
  - Hilar lymphadenopathy [None]
  - Intra-abdominal fluid collection [None]
  - Hyperbilirubinaemia [None]
  - Asthenia [None]
  - Pyrexia [None]
  - Lymphadenopathy [None]
  - Blood pressure increased [None]

NARRATIVE: CASE EVENT DATE: 2015
